FAERS Safety Report 7105123-4 (Version None)
Quarter: 2010Q4

REPORT INFORMATION
  Report Type: 
  Country: None (occurrence: None)
  Receive Date: 20101116
  Receipt Date: 20101103
  Transmission Date: 20110411
  Serious: Yes (Hospitalization, Other)
  Sender: FDA-Public Use
  Company Number: US-ELI_LILLY_AND_COMPANY-US201010002704

PATIENT
  Sex: Female
  Weight: 97.5 kg

DRUGS (5)
  1. ADCIRCA [Suspect]
     Indication: PULMONARY HYPERTENSION
     Dosage: 40 MG, DAILY (1/D)
     Route: 048
     Dates: start: 20091028
  2. TREPROSTINIL SODIUM [Concomitant]
     Indication: PULMONARY HYPERTENSION
     Dosage: 24 UG, 4/D
     Route: 055
     Dates: start: 20100427
  3. PLAVIX [Concomitant]
     Dosage: 75 MG, UNK
     Route: 048
  4. ASPIRIN [Concomitant]
     Dosage: 81 MG, UNK
     Route: 048
  5. DIGOXIN [Concomitant]
     Dosage: 0.125 MG, UNK
     Route: 048

REACTIONS (1)
  - GASTROINTESTINAL HAEMORRHAGE [None]
